FAERS Safety Report 9444435 (Version 1)
Quarter: 2013Q3

REPORT INFORMATION
  Report Type: Spontaneous
  Country: ES (occurrence: ES)
  Receive Date: 20130807
  Receipt Date: 20130807
  Transmission Date: 20140515
  Serious: Yes (Other)
  Sender: FDA-Public Use
  Company Number: ES-UCBSA-093557

PATIENT
  Sex: Male

DRUGS (3)
  1. NEUPRO [Suspect]
     Indication: AKATHISIA
     Route: 062
  2. TRAMADOL [Concomitant]
     Indication: INTERVERTEBRAL DISC PROTRUSION
  3. PARACETAMOL [Concomitant]
     Indication: INTERVERTEBRAL DISC PROTRUSION

REACTIONS (5)
  - Muscle spasms [Unknown]
  - Aphasia [Unknown]
  - Loss of consciousness [Unknown]
  - Fall [Unknown]
  - Sleep apnoea syndrome [Unknown]
